FAERS Safety Report 5787756-0 (Version None)
Quarter: 2008Q2

REPORT INFORMATION
  Report Type: 
  Country: None (occurrence: None)
  Receive Date: 20080624
  Receipt Date: 20080624
  Transmission Date: 20081010
  Serious: Yes (Death)
  Sender: FDA-Public Use
  Company Number: None

PATIENT
  Age: 77 Year
  Sex: Male

DRUGS (1)
  1. RANIBIZUMAB [Suspect]
     Indication: MACULAR DEGENERATION
     Dosage: 0.5 MG  ONCE A MONTH  OPHTHALMIC
     Route: 047
     Dates: start: 20070922, end: 20080219

REACTIONS (4)
  - AORTIC STENOSIS [None]
  - CORONARY ARTERY DISEASE [None]
  - MEDIASTINAL DISORDER [None]
  - THROMBOSIS [None]
